FAERS Safety Report 10362930 (Version 1)
Quarter: 2014Q3

REPORT INFORMATION
  Report Type: Spontaneous
  Country: US (occurrence: None)
  Receive Date: 20140804
  Receipt Date: 20140804
  Transmission Date: 20150326
  Serious: No
  Sender: FDA-Public Use
  Company Number: None

PATIENT
  Age: 16 Year
  Sex: Female
  Weight: 56.5 kg

DRUGS (1)
  1. ROCURONIUM [Suspect]
     Active Substance: ROCURONIUM BROMIDE
     Indication: PARALYSIS
     Route: 042
     Dates: start: 20140802

REACTIONS (2)
  - Cough [None]
  - Product quality issue [None]

NARRATIVE: CASE EVENT DATE: 20140802
